FAERS Safety Report 18236955 (Version 1)
Quarter: 2020Q3

REPORT INFORMATION
  Report Type: Spontaneous
  Country: CN (occurrence: CN)
  Receive Date: 20200907
  Receipt Date: 20200907
  Transmission Date: 20201103
  Serious: Yes (Hospitalization, Other)
  Sender: FDA-Public Use
  Company Number: CN-BAXTER-2020BAX018130

PATIENT
  Age: 56 Year
  Sex: Male
  Weight: 59 kg

DRUGS (13)
  1. EPIRUBICIN HYDROCHLORIDE. [Suspect]
     Active Substance: EPIRUBICIN HYDROCHLORIDE
     Indication: PLASMA CELL MYELOMA
     Dosage: EPIRUBICIN HYDROCHLORIDE 10 MG + 5% GLUCOSE 100 ML, DAY 1 TO 4
     Route: 041
     Dates: start: 20200815, end: 20200818
  2. SODIUM CHLORIDE. [Suspect]
     Active Substance: SODIUM CHLORIDE
     Indication: MEDICATION DILUTION
     Dosage: CYCLOPHOSPHAMIDE 0.4 G + 0.9% SODIUM CHLORIDE 250 ML, DAY 1 TO 4
     Route: 041
     Dates: start: 20200815, end: 20200818
  3. SODIUM CHLORIDE. [Suspect]
     Active Substance: SODIUM CHLORIDE
     Dosage: NOXIN 10 MG + 0.9% SODIUM CHLORIDE 500 ML, DAY 1 TO 4
     Route: 041
     Dates: start: 20200815, end: 20200818
  4. GLUCOSE [Suspect]
     Active Substance: DEXTROSE
     Indication: MEDICATION DILUTION
     Dosage: EPIRUBICIN HYDROCHLORIDE 10 MG + 5% GLUCOSE 100 ML, DAY 1 TO 4
     Route: 041
     Dates: start: 20200815, end: 20200818
  5. ENDOXAN [Suspect]
     Active Substance: CYCLOPHOSPHAMIDE
     Indication: PLASMA CELL MYELOMA
     Dosage: CYCLOPHOSPHAMIDE 0.4 G + 0.9% SODIUM CHLORIDE 250 ML, DAY 1 TO 4
     Route: 041
     Dates: start: 20200815, end: 20200818
  6. ETOPOSIDE. [Suspect]
     Active Substance: ETOPOSIDE
     Indication: PLASMA CELL MYELOMA
     Dosage: ETOPOSIDE 0.1 G + 0.9% SODIUM CHLORIDE 500 ML, DAY 1 TO 4
     Route: 041
     Dates: start: 20200815, end: 20200818
  7. 5% GLUCOSE  INJECTION [Suspect]
     Active Substance: DEXTROSE
     Indication: MEDICATION DILUTION
     Dosage: DEXAMETHASONE 40 MG + 5% GLUCOSE 100 ML, DAY 1, 4, 8 AND 11
     Route: 041
     Dates: start: 20200815, end: 20200825
  8. SODIUM CHLORIDE. [Suspect]
     Active Substance: SODIUM CHLORIDE
     Dosage: ETOPOSIDE 0.1 G + 0.9% SODIUM CHLORIDE 500 ML, DAY 1 TO 4
     Route: 041
     Dates: start: 20200815, end: 20200818
  9. NOXIN [CISPLATIN] [Suspect]
     Active Substance: CISPLATIN
     Indication: PLASMA CELL MYELOMA
     Dosage: NOXIN 10 MG + 0.9% SODIUM CHLORIDE 500 ML, DAY 1 TO 4
     Route: 041
     Dates: start: 20200815, end: 20200818
  10. BORTEZOMIB. [Suspect]
     Active Substance: BORTEZOMIB
     Indication: PLASMA CELL MYELOMA
     Dosage: BORTEZOMIB 3.5 MG + SODIUM CHLORIDE 1.4 ML, DAY 1, 4, 8 AND 11
     Route: 058
     Dates: start: 20200815, end: 20200825
  11. DEXAMETHASONE SODIUM PHOSPHATE. [Suspect]
     Active Substance: DEXAMETHASONE SODIUM PHOSPHATE
     Indication: PLASMA CELL MYELOMA
     Dosage: DEXAMETHASONE 40 MG + 5% GLUCOSE 100 ML, DAY 1, 4, 8 AND 11
     Route: 041
     Dates: start: 20200815, end: 20200825
  12. THALIDOMIDE [Suspect]
     Active Substance: THALIDOMIDE
     Indication: PLASMA CELL MYELOMA
     Dosage: DOSAGE FORM: TABLETS, FREQUENCY: QN
     Route: 048
     Dates: start: 20200815
  13. SODIUM CHLORIDE. [Suspect]
     Active Substance: SODIUM CHLORIDE
     Indication: MEDICATION DILUTION
     Dosage: BORTEZOMIB 3.5 MG + SODIUM CHLORIDE 1.4 ML, DAY 1, 4, 8 AND 11
     Route: 058
     Dates: start: 20200815, end: 20200825

REACTIONS (1)
  - Myelosuppression [Unknown]

NARRATIVE: CASE EVENT DATE: 20200818
